FAERS Safety Report 7357270-X (Version None)
Quarter: 2011Q1

REPORT INFORMATION
  Report Type: 
  Country: None (occurrence: None)
  Receive Date: 20110311
  Receipt Date: 20110311
  Transmission Date: 20110831
  Serious: Yes (Other)
  Sender: FDA-Public Use
  Company Number: None

PATIENT
  Age: 41 Year
  Sex: Male

DRUGS (2)
  1. RIBFLAVIN 0.1% OPHTHALMIC SOLUTION [Suspect]
     Indication: KERATOMILEUSIS
     Dosage: 1QT Q 2 MINS FOR 30 MINS
     Dates: start: 20110216, end: 20110216
  2. RIBFLAVIN 0.1% OPHTHALMIC SOLUTION [Suspect]

REACTIONS (2)
  - FOREIGN BODY SENSATION IN EYES [None]
  - KERATITIS HERPETIC [None]
